FAERS Safety Report 20124909 (Version 2)
Quarter: 2021Q4

REPORT INFORMATION
  Report Type: Spontaneous
  Country: PL (occurrence: PL)
  Receive Date: 20211129
  Receipt Date: 20211207
  Transmission Date: 20220303
  Serious: Yes (Life-Threatening, Other)
  Sender: FDA-Public Use
  Company Number: PL-ROCHE-2914020

PATIENT
  Age: 31 Year
  Sex: Female

DRUGS (10)
  1. CAPECITABINE [Suspect]
     Active Substance: CAPECITABINE
     Indication: Adenocarcinoma
     Dosage: 1000 MG/M2, BID (DAY 1ST-14TH)
     Route: 048
     Dates: start: 202001, end: 202007
  2. CAPECITABINE [Suspect]
     Active Substance: CAPECITABINE
     Indication: Chemotherapy
     Dosage: 1 DOSAGE FORM, QD (1000 MG/M2)
  3. CAPECITABINE [Suspect]
     Active Substance: CAPECITABINE
     Indication: Adenocarcinoma of colon
  4. OXALIPLATIN [Suspect]
     Active Substance: OXALIPLATIN
     Indication: Adenocarcinoma
     Dosage: 130 MG/M2 (DAY 1ST)
     Route: 065
     Dates: start: 202001, end: 202007
  5. OXALIPLATIN [Suspect]
     Active Substance: OXALIPLATIN
     Indication: Chemotherapy
     Dosage: 85 MG/M2 (DAY 1ST)
     Route: 065
  6. OXALIPLATIN [Suspect]
     Active Substance: OXALIPLATIN
     Indication: Adenocarcinoma of colon
     Dosage: 1 DOSAGE FORM, QD(130 MG/M2)
  7. FLUOROURACIL [Suspect]
     Active Substance: FLUOROURACIL
     Indication: Adenocarcinoma of colon
     Dosage: 400 MG/M2 (DAY 1ST AND 2ND)
     Route: 040
  8. FLUOROURACIL [Suspect]
     Active Substance: FLUOROURACIL
     Dosage: 600 MG/M2 (22-HOUR INFUSION ON DAYS 1ST AND 2NDEVERY
     Route: 040
  9. FLUOROURACIL [Suspect]
     Active Substance: FLUOROURACIL
     Dosage: 400 MILLIGRAM(600 MG /M2 22-HOUR INFUSION ON DAY 1)
     Dates: start: 2020
  10. LEUCOVORIN [Suspect]
     Active Substance: LEUCOVORIN
     Dosage: UNK
     Dates: start: 2020

REACTIONS (3)
  - Neutropenia [Unknown]
  - Neuropathy peripheral [Unknown]
  - Asthenia [Unknown]
